FAERS Safety Report 5467219-2 (Version None)
Quarter: 2007Q3

REPORT INFORMATION
  Report Type: 
  Country: None (occurrence: None)
  Receive Date: 20070820
  Receipt Date: 20070419
  Transmission Date: 20080115
  Serious: No
  Sender: FDA-Public Use
  Company Number: WAES0704USA04339

PATIENT
  Age: 84 Year
  Sex: Male
  Weight: 69.8539 kg

DRUGS (7)
  1. JANUVIA [Suspect]
     Indication: DIABETES MELLITUS
     Dosage: DAILY/PO; 25 MG/PO
     Route: 048
     Dates: start: 20070322, end: 20070415
  2. JANUVIA [Suspect]
     Indication: DIABETES MELLITUS
     Dosage: DAILY/PO; 25 MG/PO
     Route: 048
     Dates: start: 20070504, end: 20070508
  3. BENICAR [Concomitant]
  4. GLUCOTROL XL [Concomitant]
  5. LIPITOR [Concomitant]
  6. ALLOPURINOL [Concomitant]
  7. GLYBURIDE [Concomitant]

REACTIONS (4)
  - COUGH [None]
  - PHARYNGOLARYNGEAL PAIN [None]
  - RHINORRHOEA [None]
  - WRONG TECHNIQUE IN DRUG USAGE PROCESS [None]
